FAERS Safety Report 7082306-3 (Version None)
Quarter: 2010Q4

REPORT INFORMATION
  Report Type: 
  Country: None (occurrence: None)
  Receive Date: 20101104
  Receipt Date: 20101021
  Transmission Date: 20110411
  Serious: Yes (Hospitalization)
  Sender: FDA-Public Use
  Company Number: GB-RANBAXY-2010RR-37140

PATIENT
  Age: 18 Year
  Sex: Female

DRUGS (1)
  1. FLECAINIDE ACETATE [Suspect]
     Indication: INTENTIONAL OVERDOSE
     Dosage: 1200 MG, UNK
     Route: 048

REACTIONS (5)
  - ARRHYTHMIA [None]
  - BRADYCARDIA [None]
  - INTENTIONAL OVERDOSE [None]
  - MYOCARDIAL DEPRESSION [None]
  - TACHYCARDIA [None]
